FAERS Safety Report 5199873-7 (Version None)
Quarter: 2006Q4

REPORT INFORMATION
  Report Type: 
  Country: None (occurrence: None)
  Receive Date: 20061229
  Receipt Date: 20061222
  Transmission Date: 20070319
  Serious: No
  Sender: FDA-Public Use
  Company Number: B0419229A

PATIENT
  Age: 25 Year
  Sex: Female

DRUGS (6)
  1. COMBIVIR [Suspect]
     Indication: PROPHYLAXIS AGAINST HIV INFECTION
     Dosage: TWICE PER DAY ORAL
     Route: 048
     Dates: start: 20060308, end: 20060324
  2. COMBIVIR [Suspect]
  3. LEXIVA TABLET (FOSAMPRENAVIR) [Suspect]
     Indication: PROPHYLAXIS AGAINST HIV INFECTION
     Dosage: 700 MG TWICE PER DAY ORAL
     Route: 048
     Dates: start: 20060308, end: 20060324
  4. LEXIVA TABLET (FOSAMPRENAVIR) [Suspect]
  5. LEXIVA TABLET (FOSAMPRENAVIR) [Suspect]
  6. RITONAVIR TABLET (RITONAVIR) [Suspect]
     Indication: PROPHYLAXIS AGAINST HIV INFECTION
     Dosage: 100 MG TWICE PER DAY ORAL
     Route: 048
     Dates: start: 20060308, end: 20060324

REACTIONS (2)
  - ANTI-HBS ANTIBODY POSITIVE [None]
  - URTICARIA [None]
